FAERS Safety Report 13663256 (Version 1)
Quarter: 2017Q2

REPORT INFORMATION
  Report Type: Spontaneous
  Country: US (occurrence: US)
  Receive Date: 20170619
  Receipt Date: 20170619
  Transmission Date: 20170830
  Serious: No
  Sender: FDA-Public Use
  Company Number: US-TEVA-747288ACC

PATIENT
  Age: 63 Year
  Sex: Female
  Weight: 49.89 kg

DRUGS (5)
  1. THEO-24 [Concomitant]
     Active Substance: THEOPHYLLINE ANHYDROUS
  2. SPIRIVA [Concomitant]
     Active Substance: TIOTROPIUM BROMIDE MONOHYDRATE
  3. MUCUS ER [Suspect]
     Active Substance: GUAIFENESIN
     Indication: UPPER RESPIRATORY TRACT CONGESTION
     Dosage: 2400 MILLIGRAM DAILY;
     Route: 048
     Dates: start: 20161123, end: 20161130
  4. ALBUTEROL. [Concomitant]
     Active Substance: ALBUTEROL
  5. BREONESIN [Concomitant]

REACTIONS (1)
  - Drug ineffective [Unknown]

NARRATIVE: CASE EVENT DATE: 20161123
